FAERS Safety Report 6415446-X (Version None)
Quarter: 2009Q4

REPORT INFORMATION
  Report Type: 
  Country: None (occurrence: None)
  Receive Date: 20091022
  Receipt Date: 20091014
  Transmission Date: 20100525
  Serious: Yes (Other)
  Sender: FDA-Public Use
  Company Number: 8053400

PATIENT
  Age: 69 Year
  Sex: Male

DRUGS (2)
  1. KEPPRA [Suspect]
     Indication: EPILEPSY
     Dosage: NI PO
     Route: 048
     Dates: start: 20090901, end: 20090901
  2. CLERIDIUM [Concomitant]

REACTIONS (1)
  - THROMBOCYTOPENIA [None]
